FAERS Safety Report 6147384-4 (Version None)
Quarter: 2009Q2

REPORT INFORMATION
  Report Type: 
  Country: None (occurrence: None)
  Receive Date: 20090408
  Receipt Date: 20090327
  Transmission Date: 20091009
  Serious: Yes (Death)
  Sender: FDA-Public Use
  Company Number: IE-PFIZER INC-2009190280

PATIENT

DRUGS (1)
  1. GENOTROPIN [Suspect]
     Dosage: 0.4 MG, UNK

REACTIONS (1)
  - DEATH [None]
